FAERS Safety Report 6143183-8 (Version None)
Quarter: 2009Q2

REPORT INFORMATION
  Report Type: 
  Country: None (occurrence: None)
  Receive Date: 20090403
  Receipt Date: 20090323
  Transmission Date: 20091009
  Serious: Yes (Other)
  Sender: FDA-Public Use
  Company Number: FR-JNJFOC-20090306479

PATIENT
  Age: 72 Year
  Sex: Male

DRUGS (2)
  1. INFLIXIMAB [Suspect]
     Indication: ANKYLOSING SPONDYLITIS
     Dosage: TREATED FOR 2  YEARS
     Route: 042
  2. ETANERCEPT [Concomitant]
     Indication: ANKYLOSING SPONDYLITIS
     Dosage: 2 YEARS

REACTIONS (1)
  - BREAST CANCER [None]
